FAERS Safety Report 6241505-0 (Version None)
Quarter: 2009Q2

REPORT INFORMATION
  Report Type: 
  Country: None (occurrence: None)
  Receive Date: 20090623
  Receipt Date: 20060124
  Transmission Date: 20091009
  Serious: Yes (Other)
  Sender: FDA-Public Use
  Company Number: DE-ROCHE-347424

PATIENT
  Sex: Female
  Weight: 69 kg

DRUGS (22)
  1. DACLIZUMAB [Suspect]
     Route: 042
     Dates: start: 20030712
  2. DACLIZUMAB [Suspect]
     Route: 042
     Dates: start: 20030725
  3. DACLIZUMAB [Suspect]
     Route: 042
     Dates: start: 20030822, end: 20030904
  4. MYCOPHENOLATE MOFETIL [Suspect]
     Dosage: DRUG REPORTED: MYCOPHENOLAT MOFETIL
     Route: 048
     Dates: start: 20030712, end: 20030811
  5. CYCLOSPORINE [Suspect]
     Route: 048
     Dates: start: 20030712
  6. CYCLOSPORINE [Suspect]
     Route: 048
     Dates: start: 20030811
  7. CYCLOSPORINE [Suspect]
     Route: 048
     Dates: start: 20040830
  8. PREDNISOLONE [Suspect]
     Route: 042
     Dates: start: 20030712
  9. ATENOLOL [Concomitant]
  10. PANTOZOL [Concomitant]
     Route: 048
     Dates: start: 20030712
  11. FELODIPINE [Concomitant]
     Route: 048
     Dates: start: 20030716
  12. BENALAPRIL [Concomitant]
     Route: 048
     Dates: start: 20030721, end: 20031008
  13. CLONIDIN-HCL [Concomitant]
  14. CEFOTIAM [Concomitant]
     Route: 042
     Dates: start: 20030712, end: 20030720
  15. CIPROFLOXACIN [Concomitant]
     Route: 048
     Dates: start: 20030804, end: 20030818
  16. CIPROFLOXACIN [Concomitant]
     Route: 048
     Dates: start: 20031027, end: 20031029
  17. CLONIDINE [Concomitant]
     Route: 048
     Dates: start: 20030716
  18. CLONIDINE [Concomitant]
     Route: 048
     Dates: start: 20030801
  19. FUROSEMID [Concomitant]
     Route: 048
     Dates: start: 20030721, end: 20030723
  20. METOCLOPRAMIDE [Concomitant]
     Route: 048
     Dates: start: 20030716, end: 20030808
  21. PRAVASTATIN [Concomitant]
     Route: 048
     Dates: start: 20030721, end: 20031008
  22. PREDNISONE [Suspect]
     Dosage: DRUG REPORTED: PREDNISON
     Route: 048
     Dates: start: 20030714

REACTIONS (1)
  - HERPES ZOSTER [None]
